FAERS Safety Report 6683439-3 (Version None)
Quarter: 2010Q2

REPORT INFORMATION
  Report Type: 
  Country: None (occurrence: None)
  Receive Date: 20100415
  Receipt Date: 20100406
  Transmission Date: 20101027
  Serious: Yes (Disabling)
  Sender: FDA-Public Use
  Company Number: US-ABBOTT-10P-163-0636945-00

PATIENT
  Sex: Female
  Weight: 117.13 kg

DRUGS (5)
  1. HUMIRA [Suspect]
     Indication: RHEUMATOID ARTHRITIS
     Route: 058
     Dates: start: 20020101, end: 20070101
  2. HUMIRA [Suspect]
     Dosage: SWITCHED TO HUMIRA PEN
     Route: 058
     Dates: start: 20070101
  3. KEPPRA [Concomitant]
     Indication: EPILEPSY
     Dosage: 250 MG DAILY
  4. TEGRETOL [Concomitant]
     Indication: DRUG USE FOR UNKNOWN INDICATION
  5. LAMICTAL [Concomitant]
     Indication: DRUG USE FOR UNKNOWN INDICATION

REACTIONS (2)
  - AMNESIA [None]
  - BRAIN OPERATION [None]
